FAERS Safety Report 8786694 (Version 2)
Quarter: 2012Q4

REPORT INFORMATION
  Report Type: 
  Country: US (occurrence: US)
  Receive Date: 20120914
  Receipt Date: 20120924
  Transmission Date: 20130627
  Serious: Yes (Life-Threatening, Hospitalization)
  Sender: FDA-Public Use
  Company Number: US-ROCHE-1118464

PATIENT
  Age: 71 Year
  Sex: Male
  Weight: 98.38 kg

DRUGS (3)
  1. ACTEMRA [Suspect]
     Indication: RHEUMATOID ARTHRITIS
     Route: 042
     Dates: start: 20120731
  2. ACTEMRA [Suspect]
     Route: 065
     Dates: start: 20120903
  3. METHYL PREDNISOLONE SODIUM SUCCINATE [Concomitant]
     Indication: RHEUMATOID ARTHRITIS
     Route: 065

REACTIONS (3)
  - Haematochezia [Unknown]
  - Abscess [Unknown]
  - Peritonitis [Unknown]
